FAERS Safety Report 4881970-4 (Version None)
Quarter: 2006Q1

REPORT INFORMATION
  Report Type: 
  Country: None (occurrence: None)
  Receive Date: 20060117
  Receipt Date: 20060111
  Transmission Date: 20060701
  Serious: Yes (Other)
  Sender: FDA-Public Use
  Company Number: PT-GLAXOSMITHKLINE-B0406578A

PATIENT
  Age: 54 Year
  Sex: Female
  Weight: 68 kg

DRUGS (4)
  1. LAMICTAL [Suspect]
     Indication: DEPRESSION
     Dosage: 200MG PER DAY
     Route: 048
     Dates: start: 20050824, end: 20050921
  2. VALPROATE SODIUM [Concomitant]
     Route: 048
  3. VENLAFAXINE HCL [Concomitant]
  4. DIAZEPAM [Concomitant]

REACTIONS (3)
  - CYTOLYTIC HEPATITIS [None]
  - HYPERSENSITIVITY [None]
  - RASH [None]
